FAERS Safety Report 4778663-0 (Version None)
Quarter: 2005Q3

REPORT INFORMATION
  Report Type: 
  Country: None (occurrence: None)
  Receive Date: 20050922
  Receipt Date: 20050909
  Transmission Date: 20060218
  Serious: Yes (Disabling, Other)
  Sender: FDA-Public Use
  Company Number: GBWYE967109SEP05

PATIENT
  Age: 68 Year

DRUGS (1)
  1. MINOCIN [Suspect]
     Indication: PEMPHIGOID
     Dosage: 100 MG 2X PER 1 DAY, ORAL
     Route: 048
     Dates: start: 20050813, end: 20050820

REACTIONS (5)
  - CIRCULATORY COLLAPSE [None]
  - LETHARGY [None]
  - NAUSEA [None]
  - PYREXIA [None]
  - SYNCOPE [None]
